FAERS Safety Report 12350008 (Version 1)
Quarter: 2016Q2

REPORT INFORMATION
  Report Type: Spontaneous
  Country: US (occurrence: None)
  Receive Date: 20160509
  Receipt Date: 20160509
  Transmission Date: 20160815
  Serious: Yes (Hospitalization)
  Sender: FDA-Public Use
  Company Number: None

PATIENT
  Age: 72 Year
  Sex: Female
  Weight: 108.86 kg

DRUGS (9)
  1. LISINOPRIL-HCTZ [Suspect]
     Active Substance: HYDROCHLOROTHIAZIDE\LISINOPRIL
     Indication: PROPHYLAXIS
     Route: 048
  2. FISH OIL [Concomitant]
     Active Substance: FISH OIL
  3. ALBUTEROL. [Concomitant]
     Active Substance: ALBUTEROL
  4. INSTAFLEX BABY ASPIRIN [Concomitant]
  5. SYMBICORT [Concomitant]
     Active Substance: BUDESONIDE\FORMOTEROL FUMARATE DIHYDRATE
  6. PROBIOTICS [Concomitant]
     Active Substance: PROBIOTICS NOS
  7. SPIRIVA [Concomitant]
     Active Substance: TIOTROPIUM BROMIDE MONOHYDRATE
  8. CENTRUM SILVER [Concomitant]
     Active Substance: MINERALS\VITAMINS
  9. LEXAPRO [Concomitant]
     Active Substance: ESCITALOPRAM OXALATE

REACTIONS (2)
  - Anaphylactic reaction [None]
  - Throat tightness [None]

NARRATIVE: CASE EVENT DATE: 20160506
